FAERS Safety Report 14872471 (Version 4)
Quarter: 2018Q3

REPORT INFORMATION
  Report Type: Report from Study
  Country: CA (occurrence: CA)
  Receive Date: 20180510
  Receipt Date: 20180927
  Transmission Date: 20181010
  Serious: Yes (Hospitalization, Other)
  Sender: FDA-Public Use
  Company Number: CA-BRISTOL-MYERS SQUIBB COMPANY-BMS-2018-041563

PATIENT
  Age: 72 Year
  Sex: Male

DRUGS (6)
  1. ELTROXIN [Concomitant]
     Active Substance: LEVOTHYROXINE
     Indication: PRODUCT USED FOR UNKNOWN INDICATION
     Dosage: UNK
     Route: 065
  2. VITAMIN B12 [Concomitant]
     Active Substance: CYANOCOBALAMIN
     Indication: PRODUCT USED FOR UNKNOWN INDICATION
     Dosage: UNK
     Route: 065
  3. YERVOY [Suspect]
     Active Substance: IPILIMUMAB
     Indication: MALIGNANT MELANOMA
     Dosage: 230 MG, Q3WK
     Route: 065
     Dates: start: 20180425
  4. IRON [Concomitant]
     Active Substance: IRON
     Indication: PRODUCT USED FOR UNKNOWN INDICATION
     Dosage: UNK
     Route: 065
  5. NIVOLUMAB [Suspect]
     Active Substance: NIVOLUMAB
     Indication: MALIGNANT MELANOMA
     Dosage: 75 MG, Q3WK
     Route: 065
     Dates: start: 20180425
  6. SYNTHROID [Concomitant]
     Active Substance: LEVOTHYROXINE SODIUM
     Indication: PRODUCT USED FOR UNKNOWN INDICATION
     Dosage: UNK
     Route: 065

REACTIONS (16)
  - Fatigue [Recovering/Resolving]
  - Nausea [Unknown]
  - Diarrhoea [Unknown]
  - Headache [Unknown]
  - Eye pain [Unknown]
  - Urinary incontinence [Unknown]
  - Metastases to central nervous system [Unknown]
  - Abdominal pain upper [Unknown]
  - Productive cough [Unknown]
  - Alopecia [Unknown]
  - Rash [Recovering/Resolving]
  - Pain [Unknown]
  - Gastric cancer [Unknown]
  - Decreased appetite [Recovering/Resolving]
  - Dyspnoea [Unknown]
  - Back injury [Unknown]

NARRATIVE: CASE EVENT DATE: 20180527
